FAERS Safety Report 6674973-0 (Version None)
Quarter: 2010Q2

REPORT INFORMATION
  Report Type: 
  Country: None (occurrence: None)
  Receive Date: 20100409
  Receipt Date: 20100330
  Transmission Date: 20101027
  Serious: Yes (Life-Threatening, Hospitalization)
  Sender: FDA-Public Use
  Company Number: ES-WYE-H14442610

PATIENT
  Age: 77 Year
  Sex: Female

DRUGS (3)
  1. AMIODARONE HCL [Suspect]
     Indication: GASTRITIS PROPHYLAXIS
     Route: 048
     Dates: start: 20071201
  2. ALDOCUMAR [Interacting]
     Indication: ATRIAL FIBRILLATION
     Dosage: DOSE UNKNOWN, AS NEEDED
     Route: 048
     Dates: start: 20071201, end: 20090618
  3. ASPIRIN [Interacting]
     Indication: ATRIAL FIBRILLATION
     Route: 048

REACTIONS (2)
  - CEREBRAL HAEMATOMA [None]
  - DRUG INTERACTION [None]
